FAERS Safety Report 4509959-5 (Version None)
Quarter: 2004Q4

REPORT INFORMATION
  Report Type: 
  Country: None (occurrence: None)
  Receive Date: 20041119
  Receipt Date: 20041101
  Transmission Date: 20050328
  Serious: Yes (Death, Other)
  Sender: FDA-Public Use
  Company Number: GBS040915608

PATIENT
  Age: 32 Year
  Sex: Male

DRUGS (1)
  1. PROZAC [Suspect]

REACTIONS (2)
  - PULMONARY THROMBOSIS [None]
  - VASCULITIS [None]
